FAERS Safety Report 4455113-5 (Version None)
Quarter: 2004Q3

REPORT INFORMATION
  Report Type: 
  Country: None (occurrence: None)
  Receive Date: 20040917
  Receipt Date: 20040820
  Transmission Date: 20050211
  Serious: Yes (Hospitalization, Other)
  Sender: FDA-Public Use
  Company Number: 2004-BP-07056AU

PATIENT
  Sex: Male

DRUGS (1)
  1. SPIRIVA [Suspect]
     Dosage: 18 MCG (18 MCG, ONE DAILY), IH

REACTIONS (3)
  - LOWER RESPIRATORY TRACT INFECTION [None]
  - PALPITATIONS [None]
  - TACHYCARDIA [None]
